FAERS Safety Report 24896281 (Version 1)
Quarter: 2025Q1

REPORT INFORMATION
  Report Type: Spontaneous
  Country: US (occurrence: US)
  Receive Date: 20250128
  Receipt Date: 20250128
  Transmission Date: 20250408
  Serious: No
  Sender: MERCK
  Company Number: US-009507513-2501USA009485

PATIENT
  Sex: Female
  Weight: 54.4 kg

DRUGS (15)
  1. WINREVAIR [Suspect]
     Active Substance: SOTATERCEPT-CSRK
     Indication: Product used for unknown indication
  2. ORENITRAM [Suspect]
     Active Substance: TREPROSTINIL
     Indication: Pulmonary arterial hypertension
     Dosage: 6 MILLIGRAM, Q8H (STRENGTH 5MG AND 1 MG)
     Route: 048
     Dates: start: 20221221
  3. VITAMIN D3 [Concomitant]
     Active Substance: CHOLECALCIFEROL
  4. TOPAMAX [Concomitant]
     Active Substance: TOPIRAMATE
  5. CAMILA [Concomitant]
     Active Substance: NORETHINDRONE
  6. POTASSIUM CHLORIDE [Concomitant]
     Active Substance: POTASSIUM CHLORIDE
  7. OPSUMIT [Concomitant]
     Active Substance: MACITENTAN
  8. NURTEC ODT [Concomitant]
     Active Substance: RIMEGEPANT SULFATE
  9. GARLIC [Concomitant]
     Active Substance: GARLIC
  10. OXYGEN [Concomitant]
     Active Substance: OXYGEN
  11. BUMETANIDE [Concomitant]
     Active Substance: BUMETANIDE
  12. REVATIO [Concomitant]
     Active Substance: SILDENAFIL CITRATE
  13. CORICIDIN HBP CHEST CONGESTION AND COUGH [Concomitant]
     Active Substance: DEXTROMETHORPHAN HYDROBROMIDE\GUAIFENESIN
  14. XYZAL [Concomitant]
     Active Substance: LEVOCETIRIZINE DIHYDROCHLORIDE
  15. FERROUS SULFATE [Concomitant]
     Active Substance: FERROUS SULFATE

REACTIONS (1)
  - Haemoglobin increased [Unknown]
